FAERS Safety Report 6154054-5 (Version None)
Quarter: 2009Q2

REPORT INFORMATION
  Report Type: 
  Country: None (occurrence: None)
  Receive Date: 20090414
  Receipt Date: 20090410
  Transmission Date: 20091009
  Serious: Yes (Life-Threatening, Hospitalization, Other)
  Sender: FDA-Public Use
  Company Number: JP-BAYER-200811321BYL

PATIENT
  Age: 70 Year
  Sex: Male

DRUGS (11)
  1. NEXAVAR [Suspect]
     Indication: RENAL CELL CARCINOMA STAGE IV
     Dosage: TOTAL DAILY DOSE: 800 MG  UNIT DOSE: 200 MG
     Route: 048
     Dates: start: 20080425, end: 20080619
  2. NEXAVAR [Suspect]
     Dosage: TOTAL DAILY DOSE: 400 MG  UNIT DOSE: 200 MG
     Route: 048
     Dates: start: 20080620, end: 20090327
  3. GASTER D [Concomitant]
     Route: 048
     Dates: start: 20080425
  4. PAXIL [Concomitant]
     Route: 048
     Dates: start: 20080425
  5. UFT [Concomitant]
     Route: 048
     Dates: start: 20080425
  6. LOXONIN [Concomitant]
     Indication: HEADACHE
     Dosage: UNIT DOSE: 60 MG
     Route: 048
     Dates: start: 20080425
  7. LOXONIN [Concomitant]
     Route: 048
     Dates: start: 20080829
  8. MAALOX [Concomitant]
     Route: 048
     Dates: start: 20080425
  9. ZOMETA [Concomitant]
     Dosage: TOTAL DAILY DOSE: 4 MG
     Route: 042
     Dates: start: 20080425
  10. OLMETEC [Concomitant]
     Route: 048
     Dates: start: 20080425
  11. PARIET [Concomitant]
     Route: 048
     Dates: start: 20081010

REACTIONS (7)
  - ERYTHEMA MULTIFORME [None]
  - HEPATIC FUNCTION ABNORMAL [None]
  - HYPERTENSION [None]
  - PALMAR-PLANTAR ERYTHRODYSAESTHESIA SYNDROME [None]
  - PULMONARY HAEMORRHAGE [None]
  - RASH [None]
  - RENAL HAEMORRHAGE [None]
